FAERS Safety Report 7570170-5 (Version None)
Quarter: 2011Q2

REPORT INFORMATION
  Report Type: 
  Country: None (occurrence: None)
  Receive Date: 20110624
  Receipt Date: 20110613
  Transmission Date: 20111010
  Serious: Yes (Death, Other)
  Sender: FDA-Public Use
  Company Number: GB-BRISTOL-MYERS SQUIBB COMPANY-15849706

PATIENT

DRUGS (4)
  1. CYCLOSPORINE [Concomitant]
  2. CYCLOPHOSPHAMIDE [Suspect]
  3. TREOSULFAN [Suspect]
     Dosage: 1DF= 36G/M2 IN 3 DIVIDED DOSES ON 3 CONSECUTIVE DAYS
  4. CAMPATH [Suspect]
     Dosage: 1DF= 0.3 TO 1.0 MG/KG

REACTIONS (3)
  - CANDIDIASIS [None]
  - GRAFT VERSUS HOST DISEASE [None]
  - ADENOVIRUS INFECTION [None]
